FAERS Safety Report 20716520 (Version 1)
Quarter: 2022Q2

REPORT INFORMATION
  Report Type: Spontaneous
  Country: ES (occurrence: ES)
  Receive Date: 20220416
  Receipt Date: 20220416
  Transmission Date: 20220721
  Serious: Yes (Hospitalization)
  Sender: FDA-Public Use
  Company Number: None

PATIENT
  Age: 75 Year
  Sex: Female

DRUGS (12)
  1. METFORMIN [Suspect]
     Active Substance: METFORMIN HYDROCHLORIDE
     Indication: Diabetes mellitus
     Dosage: 1000.0MGC/12H,DURATION 12 DAYS,METFORMINA (1359A)
     Route: 048
     Dates: start: 20201016, end: 20201028
  2. SITAGLIPTIN [Suspect]
     Active Substance: SITAGLIPTIN
     Indication: Diabetes mellitus
     Dosage: 100.0 MG C/24 H,SITAGLIPTIN (8075A), DURATION 12 DAYS
     Route: 048
     Dates: start: 20201016, end: 20201028
  3. MYCOSTATIN [Concomitant]
     Active Substance: NYSTATIN
     Indication: Oral candidiasis
     Dosage: 500000.0 UI C/12 H,MYCOSTATIN 100,000 IU/ML ORAL SUSPENSION, 1 BOTTLE OF 60 ML
     Route: 048
     Dates: start: 20130109
  4. BENSERAZIDE HYDROCHLORIDE\LEVODOPA [Concomitant]
     Active Substance: BENSERAZIDE HYDROCHLORIDE\LEVODOPA
     Indication: Parkinson^s disease
     Dosage: 0.5 COMP A-DECOCE,MADOPAR 200MG/50MG TABLETS, 100 TABLETS
     Route: 048
     Dates: start: 20200128
  5. ACETAMINOPHEN [Concomitant]
     Active Substance: ACETAMINOPHEN
     Indication: Osteoarthritis
     Dosage: 1.0 G DECOCE,PARACETAMOL ALTER 1 G TABLETS EFG, 40 TABLETS
     Route: 048
     Dates: start: 20180423
  6. PRAMIPEXOLE [Concomitant]
     Active Substance: PRAMIPEXOLE
     Indication: Parkinson^s disease
     Dosage: 0.7 MG CE,MIRAPEXIN 0.7 MG TABLETS, 100 TABLETS
     Route: 048
     Dates: start: 20101015
  7. PRISDAL [Concomitant]
     Indication: Affective disorder
     Dosage: 40.0 MG A-DE,PRISDAL 20 MG FILM-COATED TABLETS, 28 TABLETS
     Route: 048
     Dates: start: 20110126
  8. AZITHROMYCIN [Concomitant]
     Active Substance: AZITHROMYCIN
     Indication: Asthma
     Dosage: 500.0 MG LU,MI,VI,AZITHROMYCIN CINFA 500 MG FILM-COATED TABLETS EFG, 3 TABLETS
     Route: 048
     Dates: start: 20201016
  9. OMEPRAZOLE [Concomitant]
     Active Substance: OMEPRAZOLE
     Indication: Diabetes mellitus
     Dosage: 20.0 MG A-DE,OMEPRAZOL STADA 20 MG GASTRO-RESISTANT CAPSULES, HARD EFG, 28 CAPSULES
     Route: 048
     Dates: start: 20080610
  10. COLISTIMETHATE SODIUM [Concomitant]
     Active Substance: COLISTIMETHATE SODIUM
     Indication: Pseudomonas infection
     Dosage: 1.0 MUI C/12 H,COLISTIMETHATE SODIUM ACCORD 1 MILLION IU POWDER FOR SOLUTION FOR INJECTION AND PERFU
     Route: 050
     Dates: start: 20171025
  11. NOLOTIL [Concomitant]
     Indication: Spinal osteoarthritis
     Dosage: 575.0 MG C/8 HORAS,NOLOTIL 575 MG HARD CAPSULES, 20 CAPSULES
     Route: 048
     Dates: start: 20190703
  12. ATROVENT [Concomitant]
     Active Substance: IPRATROPIUM BROMIDE
     Indication: Asthma
     Dosage: 312.5 MCG C/8 HORAS,ATROVENT MONODOSE 250 MCG / 2ML SOLUTION FOR INHALATION BY NEBULIZER, 20 AMPOULE
     Route: 050
     Dates: start: 20190424

REACTIONS (1)
  - Abdominal discomfort [Recovered/Resolved]

NARRATIVE: CASE EVENT DATE: 20201028
